FAERS Safety Report 18926880 (Version 1)
Quarter: 2021Q1

REPORT INFORMATION
  Report Type: Spontaneous
  Country: US (occurrence: US)
  Receive Date: 20210223
  Receipt Date: 20210223
  Transmission Date: 20210420
  Serious: Yes (Other)
  Sender: FDA-Public Use
  Company Number: US-EMCURE PHARMACEUTICALS LTD-2021-EPL-000543

PATIENT

DRUGS (10)
  1. SOLU?MEDROL [Suspect]
     Active Substance: METHYLPREDNISOLONE SODIUM SUCCINATE
     Indication: FACIAL PARALYSIS
     Dosage: 4 MG DOSE PACK, AT 6 TABLETS (60 MG) THE FIRST DAY
     Dates: start: 20210102
  2. HYDROCHLOROTHIAZIDE. [Concomitant]
     Active Substance: HYDROCHLOROTHIAZIDE
     Dosage: 12.5 MILLIGRAM,1X/DAY
  3. PROTONIX [Concomitant]
     Active Substance: PANTOPRAZOLE SODIUM
     Dosage: 40 MILLIGRAM,1X/DAY
  4. COVID?19 VACCINE NOS. [Suspect]
     Active Substance: COVID-19 VACCINE NOS
     Indication: COVID-19
     Dosage: IN THE LEFT ARM
     Dates: start: 20201226
  5. LISINOPRIL. [Concomitant]
     Active Substance: LISINOPRIL
     Dosage: 40 MILLIGRAM,1X/DAY
  6. BYDUREON [Concomitant]
     Active Substance: EXENATIDE
     Dosage: 2 MILLIGRAM,1X/WEEK
     Route: 058
  7. NORVASC [Concomitant]
     Active Substance: AMLODIPINE BESYLATE
     Dosage: 10 MILLIGRAM,1X/DAY
  8. ACYCLOVIR. [Suspect]
     Active Substance: ACYCLOVIR
     Indication: FACIAL PARALYSIS
     Dosage: 400 MILLIGRAM,5X/DAY
     Route: 048
     Dates: start: 20210104
  9. TETRACYCLINE HYDROCHLORIDE. [Suspect]
     Active Substance: TETRACYCLINE HYDROCHLORIDE
     Indication: FACIAL PARALYSIS
     Dosage: 100 MILLIGRAM, BID
     Route: 048
     Dates: start: 20210102
  10. PREDNISONE. [Suspect]
     Active Substance: PREDNISONE
     Indication: FACIAL PARALYSIS
     Dosage: 20 MILLIGRAM, TID
     Route: 048
     Dates: start: 20210102

REACTIONS (3)
  - Facial paralysis [Recovering/Resolving]
  - Blood glucose increased [Unknown]
  - Drug ineffective for unapproved indication [Unknown]

NARRATIVE: CASE EVENT DATE: 202101
